FAERS Safety Report 4818224-8 (Version None)
Quarter: 2005Q3

REPORT INFORMATION
  Report Type: 
  Country: None (occurrence: None)
  Receive Date: 20050929
  Receipt Date: 20050711
  Transmission Date: 20060218
  Serious: No
  Sender: FDA-Public Use
  Company Number: 05P-163-0305417-00

PATIENT
  Age: 65 Year
  Sex: Female
  Weight: 63.5036 kg

DRUGS (12)
  1. HUMIRA [Suspect]
     Indication: RHEUMATOID ARTHRITIS
     Dosage: 40 MG, 1 IN 1 WK, SUBCUTANEOUS; SEE IMAGE
     Route: 058
     Dates: start: 20030101, end: 20050301
  2. HUMIRA [Suspect]
     Indication: RHEUMATOID ARTHRITIS
     Dosage: 40 MG, 1 IN 1 WK, SUBCUTANEOUS; SEE IMAGE
     Route: 058
     Dates: start: 20050702
  3. METHOTREXATE [Concomitant]
  4. FOLIC ACID [Concomitant]
  5. HYZAAR [Concomitant]
  6. LEVOTHYROXINE [Concomitant]
  7. METOPROLOL [Concomitant]
  8. CLOPIDOGRE SULFATE [Concomitant]
  9. NIFEDIPINE [Concomitant]
  10. ATORVASTATIN CALCIUM [Concomitant]
  11. ESTROGENS CONJUGATED [Concomitant]
  12. HYDROCODONE [Concomitant]

REACTIONS (2)
  - ASTHENIA [None]
  - GASTROENTERITIS VIRAL [None]
